FAERS Safety Report 7861187-1 (Version None)
Quarter: 2011Q4

REPORT INFORMATION
  Report Type: 
  Country: None (occurrence: None)
  Receive Date: 20111027
  Receipt Date: 20111024
  Transmission Date: 20120403
  Serious: Yes (Hospitalization)
  Sender: FDA-Public Use
  Company Number: JP-ABBOTT-11P-087-0859266-00

PATIENT
  Sex: Female
  Weight: 46.1 kg

DRUGS (10)
  1. OMEPRAZOLE [Concomitant]
     Indication: PROPHYLAXIS
  2. CLARITHROMYCIN [Concomitant]
     Indication: BRONCHIOLITIS
     Route: 048
  3. ASPIRIN [Concomitant]
     Indication: LACUNAR INFARCTION
     Route: 048
  4. HUMIRA [Suspect]
     Indication: RHEUMATOID ARTHRITIS
     Route: 058
     Dates: start: 20090805, end: 20100315
  5. METHYLPREDNISOLONE [Concomitant]
     Indication: RHEUMATOID ARTHRITIS
     Dosage: 2 MG X 1
     Route: 048
  6. ALENDRONATE SODIUM [Concomitant]
     Indication: OSTEOPOROSIS
     Route: 048
  7. ISONIAZID [Concomitant]
     Indication: ANTIBIOTIC PROPHYLAXIS
     Route: 048
  8. TACROLIMUS [Concomitant]
     Indication: RHEUMATOID ARTHRITIS
     Dosage: 2 MGX1
     Route: 048
  9. CELECOXIB [Concomitant]
     Indication: RHEUMATOID ARTHRITIS
     Route: 048
  10. OMEPRAZOLE [Concomitant]
     Indication: ULCER
     Route: 048

REACTIONS (4)
  - DECREASED APPETITE [None]
  - BRONCHITIS [None]
  - SPUTUM PURULENT [None]
  - SPUTUM INCREASED [None]
